FAERS Safety Report 20711607 (Version 2)
Quarter: 2023Q4

REPORT INFORMATION
  Report Type: Report from Study
  Country: US (occurrence: US)
  Receive Date: 20220414
  Receipt Date: 20231120
  Transmission Date: 20240110
  Serious: Yes (Hospitalization)
  Sender: FDA-Public Use
  Company Number: US-SHIRE-US202019079

PATIENT
  Sex: Female

DRUGS (1)
  1. HUMAN IMMUNOGLOBULIN G [Suspect]
     Active Substance: HUMAN IMMUNOGLOBULIN G
     Indication: Primary immunodeficiency syndrome
     Dosage: UNK
     Route: 058

REACTIONS (8)
  - Road traffic accident [Unknown]
  - Limb injury [Unknown]
  - Eye disorder [Unknown]
  - Thyroid disorder [Unknown]
  - COVID-19 [Unknown]
  - Insurance issue [Unknown]
  - Inability to afford medication [Unknown]
  - Product use issue [Unknown]
